FAERS Safety Report 24762921 (Version 2)
Quarter: 2024Q4

REPORT INFORMATION
  Report Type: Spontaneous
  Country: US (occurrence: US)
  Receive Date: 20241222
  Receipt Date: 20241226
  Transmission Date: 20250115
  Serious: No
  Sender: ABBVIE
  Company Number: US-ABBVIE-6057193

PATIENT
  Age: 2 Year
  Sex: Male

DRUGS (8)
  1. CREON [Suspect]
     Active Substance: PANCRELIPASE AMYLASE\PANCRELIPASE LIPASE\PANCRELIPASE PROTEASE
     Indication: Pancreatic failure
     Dosage: 4 CAPS WITH MEALS; 1-2 CAPS WITH SNACKS?FORM STRENGTH: 6000 UNIT
     Route: 048
     Dates: start: 20220930, end: 20241201
  2. CREON [Suspect]
     Active Substance: PANCRELIPASE AMYLASE\PANCRELIPASE LIPASE\PANCRELIPASE PROTEASE
     Indication: Pancreatic failure
     Dosage: 5 CAPS WITH MEALS; 2 CAPS WITH SNACKS?FORM STRENGTH: 6000 UNIT
     Route: 048
     Dates: start: 20241202
  3. CREON [Suspect]
     Active Substance: PANCRELIPASE AMYLASE\PANCRELIPASE LIPASE\PANCRELIPASE PROTEASE
     Indication: Pancreatic failure
     Route: 048
  4. ALBUTEROL [Concomitant]
     Active Substance: ALBUTEROL
     Indication: Cystic fibrosis
  5. SODIUM CHLORIDE [Concomitant]
     Active Substance: SODIUM CHLORIDE
     Indication: Cystic fibrosis
     Dosage: FORM STRENGTH: 7 PERCENT
  6. TRIKAFTA [Concomitant]
     Active Substance: ELEXACAFTOR\IVACAFTOR\TEZACAFTOR
     Indication: Cystic fibrosis
  7. STREPTODORNASE\STREPTOKINASE [Concomitant]
     Active Substance: STREPTODORNASE\STREPTOKINASE
     Indication: Cystic fibrosis
  8. VITAMIN D [Concomitant]
     Active Substance: VITAMIN D NOS
     Indication: Cystic fibrosis

REACTIONS (7)
  - Malabsorption [Recovering/Resolving]
  - Abdominal discomfort [Recovering/Resolving]
  - Faecal volume increased [Recovering/Resolving]
  - Frequent bowel movements [Recovering/Resolving]
  - Steatorrhoea [Recovering/Resolving]
  - Dumping syndrome [Unknown]
  - Gastrointestinal disorder [Unknown]

NARRATIVE: CASE EVENT DATE: 20241101
